FAERS Safety Report 8727169 (Version 2)
Quarter: 2015Q2

REPORT INFORMATION
  Report Type: Report from Study
  Country: US (occurrence: US)
  Receive Date: 20120816
  Receipt Date: 20150626
  Transmission Date: 20150821
  Serious: Yes (Hospitalization)
  Sender: FDA-Public Use
  Company Number: US-ROCHE-1101250

PATIENT
  Sex: Male

DRUGS (20)
  1. HALCION [Concomitant]
     Active Substance: TRIAZOLAM
     Route: 065
  2. VALIUM [Concomitant]
     Active Substance: DIAZEPAM
     Route: 048
  3. TRIDIL [Concomitant]
     Active Substance: NITROGLYCERIN
     Route: 065
  4. TRIDIL [Concomitant]
     Active Substance: NITROGLYCERIN
     Dosage: OVER 15 MINS
     Route: 065
  5. MGSO4 [Concomitant]
     Active Substance: MAGNESIUM SULFATE
     Route: 042
  6. TYLENOL [Concomitant]
     Active Substance: ACETAMINOPHEN
  7. ASA [Concomitant]
     Active Substance: ASPIRIN
  8. LOPRESSOR [Concomitant]
     Active Substance: METOPROLOL TARTRATE
  9. ACTIVASE [Suspect]
     Active Substance: ALTEPLASE
     Indication: ACUTE MYOCARDIAL INFARCTION
     Route: 065
  10. TRIDIL [Concomitant]
     Active Substance: NITROGLYCERIN
     Route: 065
  11. TRIDIL [Concomitant]
     Active Substance: NITROGLYCERIN
     Route: 065
  12. MGSO4 [Concomitant]
     Active Substance: MAGNESIUM SULFATE
     Route: 042
  13. COLACE [Concomitant]
     Active Substance: DOCUSATE SODIUM
     Route: 048
  14. COMPAZINE [Concomitant]
     Active Substance: PROCHLORPERAZINE MALEATE
  15. HEPARIN (BOLUS) [Concomitant]
     Dosage: 1000 UNITS PER HOUR
     Route: 040
  16. MILK OF MAGNESIA [Concomitant]
     Active Substance: MAGNESIUM HYDROXIDE
     Route: 065
  17. TRIDIL [Concomitant]
     Active Substance: NITROGLYCERIN
     Route: 065
  18. TRIDIL [Concomitant]
     Active Substance: NITROGLYCERIN
     Route: 065
  19. MGSO4 [Concomitant]
     Active Substance: MAGNESIUM SULFATE
     Route: 042
  20. PROCARDIA (UNITED STATES) [Concomitant]
     Route: 048

REACTIONS (2)
  - Chest pain [Unknown]
  - Hypotension [Unknown]
